FAERS Safety Report 19656662 (Version 1)
Quarter: 2021Q3

REPORT INFORMATION
  Report Type: Report from Study
  Country: US (occurrence: US)
  Receive Date: 20210804
  Receipt Date: 20210804
  Transmission Date: 20211014
  Serious: Yes (Hospitalization, Other)
  Sender: FDA-Public Use
  Company Number: US-SA-2013SA113991

PATIENT
  Age: 58 Year
  Sex: Female

DRUGS (17)
  1. TERIFLUNOMIDE. [Suspect]
     Active Substance: TERIFLUNOMIDE
     Dosage: 14 MG, QD
     Route: 048
     Dates: start: 20210224, end: 20210722
  2. GABAPENTIN. [Concomitant]
     Active Substance: GABAPENTIN
  3. ALENDRONATE SODIUM. [Suspect]
     Active Substance: ALENDRONATE SODIUM
     Dosage: UNK
     Dates: end: 20210722
  4. RANOLAZINE. [Concomitant]
     Active Substance: RANOLAZINE
  5. TERIFLUNOMIDE. [Suspect]
     Active Substance: TERIFLUNOMIDE
     Dosage: UNK
  6. TERIFLUNOMIDE. [Suspect]
     Active Substance: TERIFLUNOMIDE
     Indication: MULTIPLE SCLEROSIS
     Dosage: 14 MG,QD
     Route: 048
     Dates: start: 20131029, end: 20160801
  7. POTASSIUM [Concomitant]
     Active Substance: POTASSIUM
  8. ASPIRIN. [Concomitant]
     Active Substance: ASPIRIN
  9. VITAMIN D NOS [Concomitant]
     Active Substance: VITAMIN D NOS
  10. TIZANIDINE. [Concomitant]
     Active Substance: TIZANIDINE
  11. DULOXETINE. [Concomitant]
     Active Substance: DULOXETINE
  12. PANTOPRAZOLE [Concomitant]
     Active Substance: PANTOPRAZOLE
  13. AMIODARONE [Concomitant]
     Active Substance: AMIODARONE
  14. TERIFLUNOMIDE. [Suspect]
     Active Substance: TERIFLUNOMIDE
     Dosage: 14 MG,QD
     Route: 048
     Dates: start: 20170524, end: 20181231
  15. CARVEDILOL. [Concomitant]
     Active Substance: CARVEDILOL
  16. ATORVASTATIN [Concomitant]
     Active Substance: ATORVASTATIN
  17. FUROSEMIDE. [Concomitant]
     Active Substance: FUROSEMIDE

REACTIONS (27)
  - Myocardial infarction [Unknown]
  - Dehydration [Recovered/Resolved]
  - Muscular weakness [Unknown]
  - Fatigue [Unknown]
  - Memory impairment [Not Recovered/Not Resolved]
  - Multiple sclerosis [Unknown]
  - Feeling abnormal [Unknown]
  - Alopecia [Not Recovered/Not Resolved]
  - Malaise [Not Recovered/Not Resolved]
  - Musculoskeletal disorder [Unknown]
  - Haemorrhage [Unknown]
  - Chromaturia [Recovered/Resolved]
  - Asthenia [Unknown]
  - Sensory loss [Unknown]
  - Pain [Not Recovered/Not Resolved]
  - Product dose omission issue [Unknown]
  - Cardiac failure congestive [Unknown]
  - Anaemia [Unknown]
  - Pulmonary oedema [Recovered/Resolved]
  - Finger deformity [Unknown]
  - Fall [Unknown]
  - Headache [Not Recovered/Not Resolved]
  - Nausea [Unknown]
  - Heart rate irregular [Unknown]
  - Amnesia [Not Recovered/Not Resolved]
  - Grip strength decreased [Unknown]
  - Pain [Unknown]

NARRATIVE: CASE EVENT DATE: 201403
